FAERS Safety Report 5927124-1 (Version None)
Quarter: 2008Q4

REPORT INFORMATION
  Report Type: 
  Country: None (occurrence: None)
  Receive Date: 20081022
  Receipt Date: 20081010
  Transmission Date: 20090506
  Serious: Yes (Other)
  Sender: FDA-Public Use
  Company Number: BR-PFIZER INC-2008086172

PATIENT
  Sex: Female

DRUGS (2)
  1. DOSTINEX [Suspect]
     Indication: SUPPRESSED LACTATION
     Route: 048
     Dates: start: 20081001
  2. CEPHALEXIN [Concomitant]

REACTIONS (1)
  - MASTITIS [None]
